FAERS Safety Report 9519218 (Version 2)
Quarter: 2014Q1

REPORT INFORMATION
  Report Type: Spontaneous
  Country: US (occurrence: None)
  Receive Date: 20130305
  Receipt Date: 20140306
  Transmission Date: 20141002
  Serious: Yes (Other)
  Sender: FDA-Public Use
  Company Number: 163-21880-12103407

PATIENT
  Age: 63 Year
  Sex: Male
  Weight: 90.72 kg

DRUGS (10)
  1. REVLIMID [Suspect]
     Indication: PLASMA CELL MYELOMA
     Dosage: 25 MG, 21 IN 28 D, PO
     Route: 048
     Dates: start: 20120215
  2. DEXAMETHASONE (DEXAMETHASONE) (UNKNOWN) [Concomitant]
  3. MULTIVITAMIN(MULTIVITAMINS) [Concomitant]
  4. DILTIAZEM ER(DILTIAZEM HYDROCHLORIDE)(UNKNOWN) [Concomitant]
  5. ACYCLOVIR(ACICLOVIR)(UNKNOWN) [Concomitant]
  6. DIGOXIN(DIGOXIN)(UNKNOWN) [Concomitant]
  7. OMEPRAZOLE(OMEPRAZOLE)(UNKNOWN) [Concomitant]
  8. PROAIR(FLUTICASONE PROPIONATE)(UNKNOWN) [Concomitant]
  9. COENZYME Q10(UBIDECARENONE)(UNKNOWN) [Concomitant]
  10. ASPIRIN(ACETYLSALICYLIC ACID)(UNKNOWN) [Concomitant]

REACTIONS (4)
  - Hyperglycaemia [None]
  - Blood cholesterol increased [None]
  - Dysgeusia [None]
  - Proteinuria [None]
